FAERS Safety Report 17191690 (Version 1)
Quarter: 2020Q1

REPORT INFORMATION
  Report Type: Spontaneous
  Country: US (occurrence: US)
  Receive Date: 20191222
  Receipt Date: 20191222
  Transmission Date: 20200409
  Serious: No
  Sender: FDA-Public Use
  Company Number: None

PATIENT
  Sex: Male

DRUGS (1)
  1. MESALAMINE RECTAL SUSPENSION ENEMA [Suspect]
     Active Substance: MESALAMINE

REACTIONS (2)
  - Manufacturing product storage issue [None]
  - Manufacturing product shipping issue [None]

NARRATIVE: CASE EVENT DATE: 20191220
